FAERS Safety Report 19210937 (Version 8)
Quarter: 2021Q3

REPORT INFORMATION
  Report Type: Report from Study
  Country: None (occurrence: PT)
  Receive Date: 20210504
  Receipt Date: 20210929
  Transmission Date: 20211014
  Serious: Yes (Other)
  Sender: FDA-Public Use
  Company Number: PT-ABBVIE-21K-130-3888190-00

PATIENT
  Age: 56 Year
  Sex: Male
  Weight: 61 kg

DRUGS (10)
  1. DUODOPA [Suspect]
     Active Substance: CARBIDOPA\LEVODOPA
     Dosage: 20 MG + 5 MG, MAINT:5.6CC/H; EXTRA:5.0CC
     Route: 050
     Dates: start: 2021, end: 2021
  2. TRAZODONE [Concomitant]
     Active Substance: TRAZODONE HYDROCHLORIDE
     Indication: PRODUCT USED FOR UNKNOWN INDICATION
  3. DUODOPA [Suspect]
     Active Substance: CARBIDOPA\LEVODOPA
     Dosage: 20 MG + 5 MG?MORNING:6CC;MAINTENANC:5.8CC/H;EXTRA:5CC
     Route: 050
     Dates: start: 2021
  4. TIZANIDINE. [Concomitant]
     Active Substance: TIZANIDINE
     Indication: PRODUCT USED FOR UNKNOWN INDICATION
  5. DUODOPA [Suspect]
     Active Substance: CARBIDOPA\LEVODOPA
     Dosage: 20 MG + 5 MG/MORN:9.0CC;MAINT:6.0CC/H;EXTRA:5.0CC
     Route: 050
     Dates: start: 20210430, end: 2021
  6. DUODOPA [Suspect]
     Active Substance: CARBIDOPA\LEVODOPA
     Dosage: 20 MG + 5 MG?MORN:6.0CC;MAINT:5.6CC/H;EXTRA:5.0CC
     Route: 050
     Dates: start: 20210524, end: 2021
  7. DUODOPA [Suspect]
     Active Substance: CARBIDOPA\LEVODOPA
     Route: 050
  8. DOMPERIDONE [Concomitant]
     Active Substance: DOMPERIDONE
     Indication: PRODUCT USED FOR UNKNOWN INDICATION
  9. DUODOPA [Suspect]
     Active Substance: CARBIDOPA\LEVODOPA
     Indication: PARKINSON^S DISEASE
     Dosage: 20 MG +5 MG, MORN:4.0+5.0CC;MAINT:1.0CC/H;EXTRA:1.0CC
     Route: 050
     Dates: start: 20201210
  10. ARTANE [Concomitant]
     Active Substance: TRIHEXYPHENIDYL HYDROCHLORIDE
     Indication: PRODUCT USED FOR UNKNOWN INDICATION

REACTIONS (4)
  - Weight decreased [Recovered/Resolved]
  - Dysphagia [Not Recovered/Not Resolved]
  - Dyskinesia [Recovered/Resolved]
  - On and off phenomenon [Recovered/Resolved]

NARRATIVE: CASE EVENT DATE: 202101
